FAERS Safety Report 10994736 (Version 1)
Quarter: 2015Q2

REPORT INFORMATION
  Report Type: Spontaneous
  Country: GB (occurrence: GB)
  Receive Date: 20150407
  Receipt Date: 20150407
  Transmission Date: 20150821
  Serious: Yes (Hospitalization, Other)
  Sender: FDA-Public Use
  Company Number: GB-MERCK-1503GBR014744

PATIENT
  Age: 31 Year
  Sex: Male
  Weight: 63.5 kg

DRUGS (2)
  1. VITAMIN D [Concomitant]
     Active Substance: CHOLECALCIFEROL
  2. PROPECIA [Suspect]
     Active Substance: FINASTERIDE
     Dosage: 0.5 MG, UNK
     Route: 048
     Dates: end: 2013

REACTIONS (19)
  - Cognitive disorder [Not Recovered/Not Resolved]
  - Skin exfoliation [Not Recovered/Not Resolved]
  - Photophobia [Not Recovered/Not Resolved]
  - Loss of libido [Unknown]
  - Flat affect [Not Recovered/Not Resolved]
  - Insomnia [Not Recovered/Not Resolved]
  - Sexual dysfunction [Not Recovered/Not Resolved]
  - Anorgasmia [Not Recovered/Not Resolved]
  - Sensory loss [Not Recovered/Not Resolved]
  - Anhedonia [Not Recovered/Not Resolved]
  - Tinnitus [Not Recovered/Not Resolved]
  - Genital disorder male [Not Recovered/Not Resolved]
  - Semen analysis abnormal [Not Recovered/Not Resolved]
  - Ejaculation failure [Not Recovered/Not Resolved]
  - Vitreous floaters [Not Recovered/Not Resolved]
  - Dry eye [Not Recovered/Not Resolved]
  - Memory impairment [Not Recovered/Not Resolved]
  - Executive dysfunction [Not Recovered/Not Resolved]
  - Erectile dysfunction [Not Recovered/Not Resolved]

NARRATIVE: CASE EVENT DATE: 20120501
